FAERS Safety Report 13375432 (Version 1)
Quarter: 2017Q1

REPORT INFORMATION
  Report Type: Spontaneous
  Country: US (occurrence: US)
  Receive Date: 20170327
  Receipt Date: 20170327
  Transmission Date: 20170429
  Serious: No
  Sender: FDA-Public Use
  Company Number: US-BRISTOL-MYERS SQUIBB COMPANY-BMS-2017-021809

PATIENT
  Sex: Female

DRUGS (1)
  1. ELIQUIS [Suspect]
     Active Substance: APIXABAN
     Indication: CEREBROVASCULAR ACCIDENT PROPHYLAXIS
     Dosage: 2.5 MG, BID
     Route: 048
     Dates: start: 20170110, end: 20170307

REACTIONS (5)
  - Decreased appetite [Recovered/Resolved]
  - Confusional state [Recovered/Resolved]
  - Pruritus [Recovered/Resolved]
  - Memory impairment [Recovered/Resolved]
  - Depression [Recovered/Resolved]
